FAERS Safety Report 6510606-1 (Version None)
Quarter: 2009Q4

REPORT INFORMATION
  Report Type: 
  Country: None (occurrence: None)
  Receive Date: 20091222
  Receipt Date: 20091104
  Transmission Date: 20100525
  Serious: No
  Sender: FDA-Public Use
  Company Number: US-ASTRAZENECA-2009SE24393

PATIENT
  Age: 84 Year
  Sex: Female
  Weight: 67.1 kg

DRUGS (4)
  1. CRESTOR [Suspect]
     Indication: BLOOD CHOLESTEROL
     Route: 048
     Dates: start: 20090101
  2. SYNTHROID [Concomitant]
  3. INHALER [Concomitant]
  4. ATENOLOL [Concomitant]

REACTIONS (2)
  - FALL [None]
  - OEDEMA PERIPHERAL [None]
